FAERS Safety Report 13075202 (Version 1)
Quarter: 2016Q4

REPORT INFORMATION
  Report Type: Spontaneous
  Country: US (occurrence: US)
  Receive Date: 20161230
  Receipt Date: 20161230
  Transmission Date: 20170207
  Serious: Yes (Other)
  Sender: FDA-Public Use
  Company Number: US-WEST-WARD PHARMACEUTICALS CORP.-US-H14001-16-03109

PATIENT
  Age: 60 Year

DRUGS (4)
  1. DEXAMETHASONE. [Suspect]
     Active Substance: DEXAMETHASONE
     Indication: PAIN IN EXTREMITY
     Dosage: 1.5 ML 4 MG/ML DEXAMETHASONE
     Route: 065
  2. DEXAMETHASONE. [Suspect]
     Active Substance: DEXAMETHASONE
     Indication: RADICULAR PAIN
  3. NORMAL SALINE [Concomitant]
     Active Substance: SODIUM CHLORIDE
     Indication: PRODUCT USED FOR UNKNOWN INDICATION
     Route: 065
  4. LIDOCAINE 2% [Concomitant]
     Active Substance: LIDOCAINE
     Indication: ANAESTHESIA
     Route: 065

REACTIONS (3)
  - Infarction [Not Recovered/Not Resolved]
  - Cauda equina syndrome [Not Recovered/Not Resolved]
  - Incorrect route of drug administration [Unknown]
